FAERS Safety Report 13798286 (Version 3)
Quarter: 2017Q3

REPORT INFORMATION
  Report Type: Spontaneous
  Country: RS (occurrence: RS)
  Receive Date: 20170727
  Receipt Date: 20170919
  Transmission Date: 20171127
  Serious: Yes (Death, Life-Threatening, Other)
  Sender: FDA-Public Use
  Company Number: RS-STRIDES ARCOLAB LIMITED-2017SP011133

PATIENT

DRUGS (9)
  1. MORPHINE [Suspect]
     Active Substance: MORPHINE
     Indication: PRODUCT USED FOR UNKNOWN INDICATION
     Dosage: UNK
     Route: 065
  2. VANCOMYCIN [Concomitant]
     Active Substance: VANCOMYCIN
     Indication: PRODUCT USED FOR UNKNOWN INDICATION
     Dosage: UNK
     Route: 065
  3. MEROPENEM. [Concomitant]
     Active Substance: MEROPENEM
     Indication: PRODUCT USED FOR UNKNOWN INDICATION
     Dosage: UNK
     Route: 065
  4. AMPICILLIN [Suspect]
     Active Substance: AMPICILLIN
     Indication: PRODUCT USED FOR UNKNOWN INDICATION
     Dosage: UNK
     Route: 065
  5. AMIKACIN [Suspect]
     Active Substance: AMIKACIN
     Indication: PRODUCT USED FOR UNKNOWN INDICATION
     Dosage: UNK
     Route: 065
  6. RANITIDINE. [Suspect]
     Active Substance: RANITIDINE
     Indication: PRODUCT USED FOR UNKNOWN INDICATION
     Dosage: UNK
     Route: 065
  7. METRONIDAZOLE. [Suspect]
     Active Substance: METRONIDAZOLE
     Indication: PRODUCT USED FOR UNKNOWN INDICATION
     Dosage: UNK
     Route: 065
  8. FLUCONAZOLE. [Concomitant]
     Active Substance: FLUCONAZOLE
     Indication: PRODUCT USED FOR UNKNOWN INDICATION
     Dosage: UNK
     Route: 065
  9. CEFTRIAXONE. [Concomitant]
     Active Substance: CEFTRIAXONE
     Indication: PRODUCT USED FOR UNKNOWN INDICATION
     Dosage: UNK
     Route: 065

REACTIONS (29)
  - Metabolic acidosis [Unknown]
  - Nikolsky^s sign [Unknown]
  - Vaginal erosion [Unknown]
  - Eyelid oedema [Unknown]
  - Myalgia [Unknown]
  - Cheilitis [Unknown]
  - Conjunctivitis [Unknown]
  - Pleural effusion [Unknown]
  - Rash [Recovered/Resolved]
  - Pneumonia [Unknown]
  - Anxiety [Unknown]
  - Somnolence [Unknown]
  - Disorientation [Unknown]
  - Respiratory acidosis [Unknown]
  - Scab [Unknown]
  - Mucosal necrosis [Unknown]
  - Stomatitis [Unknown]
  - Septic shock [Fatal]
  - Bacteraemia [Fatal]
  - Malaise [Unknown]
  - Multiple organ dysfunction syndrome [Fatal]
  - Pseudomonas infection [Fatal]
  - Vulvar erosion [Unknown]
  - Pyrexia [Unknown]
  - Respiratory failure [Fatal]
  - Toxic epidermal necrolysis [Fatal]
  - Anal erosion [Unknown]
  - Confusional state [Unknown]
  - Erythema [Unknown]
